FAERS Safety Report 9245808 (Version 1)
Quarter: 2013Q2

REPORT INFORMATION
  Report Type: Report from Study
  Country: CA (occurrence: CA)
  Receive Date: 20130422
  Receipt Date: 20130422
  Transmission Date: 20140414
  Serious: Yes (Other)
  Sender: FDA-Public Use
  Company Number: CA-ROCHE-1216631

PATIENT
  Sex: Male
  Weight: 90.7 kg

DRUGS (2)
  1. XELODA [Suspect]
     Indication: COLON CANCER
     Route: 048
     Dates: start: 201102, end: 201111
  2. XELODA [Suspect]
     Route: 048
     Dates: start: 20110408

REACTIONS (1)
  - Neoplasm malignant [Not Recovered/Not Resolved]
